FAERS Safety Report 4402830-9 (Version None)
Quarter: 2004Q3

REPORT INFORMATION
  Report Type: 
  Country: None (occurrence: None)
  Receive Date: 20040720
  Receipt Date: 20040720
  Transmission Date: 20050211
  Serious: Yes (Life-Threatening)
  Sender: FDA-Public Use
  Company Number: None

PATIENT
  Sex: Male

DRUGS (1)
  1. ABILIFY [Suspect]
     Indication: SCHIZOAFFECTIVE DISORDER
     Dosage: 15 MG PO Q AM
     Route: 048

REACTIONS (4)
  - BALANCE DISORDER [None]
  - DYSPNOEA [None]
  - NUCHAL RIGIDITY [None]
  - SWOLLEN TONGUE [None]
